FAERS Safety Report 16702438 (Version 3)
Quarter: 2020Q1

REPORT INFORMATION
  Report Type: Spontaneous
  Country: US (occurrence: US)
  Receive Date: 20190814
  Receipt Date: 20200109
  Transmission Date: 20200409
  Serious: No
  Sender: FDA-Public Use
  Company Number: US-PFIZER INC-2019346562

PATIENT
  Age: 80 Year
  Sex: Female

DRUGS (1)
  1. IBRANCE [Suspect]
     Active Substance: PALBOCICLIB
     Indication: BREAST CANCER FEMALE
     Dosage: 125 MG, CYCLIC (DAILY FOR 21 DAYS ON, 7 DAYS OFF)
     Route: 048
     Dates: start: 201906

REACTIONS (6)
  - Rash [Unknown]
  - Dry skin [Unknown]
  - Nail disorder [Unknown]
  - Epistaxis [Unknown]
  - Alopecia [Unknown]
  - Skin fissures [Unknown]

NARRATIVE: CASE EVENT DATE: 2019
